FAERS Safety Report 6662891-3 (Version None)
Quarter: 2010Q2

REPORT INFORMATION
  Report Type: 
  Country: None (occurrence: None)
  Receive Date: 20100401
  Receipt Date: 20100318
  Transmission Date: 20101027
  Serious: Yes (Other)
  Sender: FDA-Public Use
  Company Number: IL-RANBAXY-2010RR-32769

PATIENT
  Age: 75 Year
  Sex: Female

DRUGS (1)
  1. PRAVASTATIN [Suspect]

REACTIONS (3)
  - PURPURA [None]
  - ULCER [None]
  - VASCULITIS [None]
